FAERS Safety Report 5278447-3 (Version None)
Quarter: 2007Q1

REPORT INFORMATION
  Report Type: 
  Country: None (occurrence: None)
  Receive Date: 20070328
  Receipt Date: 20070320
  Transmission Date: 20070707
  Serious: Yes (Disabling, Other)
  Sender: FDA-Public Use
  Company Number: PHBS2007JP03107

PATIENT
  Age: 56 Year
  Sex: Male
  Weight: 65 kg

DRUGS (3)
  1. ROCEPHIN [Suspect]
     Indication: PYREXIA
     Dosage: 2 G/DAY
     Route: 042
     Dates: start: 20070207, end: 20070213
  2. FUTHAN [Concomitant]
     Indication: PANCREATITIS ACUTE
     Dosage: 40 MG, UNK
     Route: 042
     Dates: start: 20070201, end: 20070215
  3. VOLTAREN [Suspect]
     Indication: PYREXIA
     Dosage: 100 MG/DAY
     Route: 054
     Dates: start: 20070206, end: 20070213

REACTIONS (15)
  - ABDOMINAL PAIN [None]
  - ALANINE AMINOTRANSFERASE INCREASED [None]
  - ASPARTATE AMINOTRANSFERASE INCREASED [None]
  - BLOOD ALKALINE PHOSPHATASE INCREASED [None]
  - BLOOD CREATINE PHOSPHOKINASE INCREASED [None]
  - BLOOD LACTATE DEHYDROGENASE INCREASED [None]
  - COLONIC STENOSIS [None]
  - COLONOSCOPY [None]
  - DRUG INTERACTION [None]
  - ENTEROCOLITIS HAEMORRHAGIC [None]
  - GAMMA-GLUTAMYLTRANSFERASE INCREASED [None]
  - GLYCOSYLATED HAEMOGLOBIN INCREASED [None]
  - MELAENA [None]
  - PANCREATITIS [None]
  - WHITE BLOOD CELL COUNT INCREASED [None]
